FAERS Safety Report 15906092 (Version 1)
Quarter: 2019Q1

REPORT INFORMATION
  Report Type: Spontaneous
  Country: FR (occurrence: FR)
  Receive Date: 20190204
  Receipt Date: 20190204
  Transmission Date: 20190417
  Serious: Yes (Other)
  Sender: FDA-Public Use
  Company Number: PHHY2018FR183716

PATIENT
  Age: 62 Year
  Sex: Female

DRUGS (8)
  1. ADALIMUMAB [Suspect]
     Active Substance: ADALIMUMAB
     Indication: SARCOIDOSIS
     Dosage: UNK
     Route: 065
     Dates: start: 2009
  2. DOXYCYCLINE. [Concomitant]
     Active Substance: DOXYCYCLINE
     Indication: SARCOIDOSIS
     Dosage: UNK
     Route: 065
  3. COLCHICINE. [Concomitant]
     Active Substance: COLCHICINE
     Indication: SARCOIDOSIS
     Route: 065
  4. METHOTREXATE. [Suspect]
     Active Substance: METHOTREXATE
     Indication: SARCOIDOSIS
     Route: 065
  5. MYCOPHENOLATE MOFETIL. [Suspect]
     Active Substance: MYCOPHENOLATE MOFETIL
     Indication: SARCOIDOSIS
     Route: 065
  6. THALIDOMIDE [Concomitant]
     Active Substance: THALIDOMIDE
     Indication: SARCOIDOSIS
     Route: 065
  7. HYDROXYCHLOROQUINE [Concomitant]
     Active Substance: HYDROXYCHLOROQUINE
     Indication: SARCOIDOSIS
     Dosage: UNK
     Route: 065
  8. DAPSONE. [Concomitant]
     Active Substance: DAPSONE
     Indication: PRODUCT USED FOR UNKNOWN INDICATION
     Route: 065

REACTIONS (6)
  - Tuberculin test false negative [Recovered/Resolved]
  - Ulcer [Recovered/Resolved]
  - Skin plaque [Recovered/Resolved]
  - Cutaneous tuberculosis [Recovering/Resolving]
  - Product use in unapproved indication [Unknown]
  - Condition aggravated [Recovering/Resolving]
